FAERS Safety Report 6557698-1 (Version None)
Quarter: 2010Q1

REPORT INFORMATION
  Report Type: 
  Country: None (occurrence: None)
  Receive Date: 20100129
  Receipt Date: 20091216
  Transmission Date: 20100710
  Serious: Yes (Other)
  Sender: FDA-Public Use
  Company Number: IT-BAYER-201013732GPV

PATIENT
  Age: 37 Year
  Sex: Female

DRUGS (3)
  1. CIPROFLOXACIN [Suspect]
     Indication: DRUG USE FOR UNKNOWN INDICATION
     Route: 065
  2. NITROFURANTOIN [Suspect]
     Indication: URINARY TRACT INFECTION
  3. VITAMINS [Concomitant]

REACTIONS (1)
  - THROMBOSIS [None]
